FAERS Safety Report 10474107 (Version 1)
Quarter: 2014Q3

REPORT INFORMATION
  Report Type: Spontaneous
  Country: US (occurrence: US)
  Receive Date: 20140924
  Receipt Date: 20140924
  Transmission Date: 20150326
  Serious: No
  Sender: FDA-Public Use
  Company Number: US-ASTRAZENECA-2014SE06915

PATIENT
  Sex: Female

DRUGS (1)
  1. LISINOPRIL. [Suspect]
     Active Substance: LISINOPRIL
     Route: 048

REACTIONS (5)
  - Feeling abnormal [Unknown]
  - Hypoaesthesia [Unknown]
  - Allergy to arthropod sting [Unknown]
  - Adverse reaction [Unknown]
  - Paraesthesia [Unknown]
